FAERS Safety Report 6010672-6 (Version None)
Quarter: 2008Q4

REPORT INFORMATION
  Report Type: 
  Country: None (occurrence: None)
  Receive Date: 20081218
  Receipt Date: 20081117
  Transmission Date: 20090506
  Serious: No
  Sender: FDA-Public Use
  Company Number: US-BAYER-200838785NA

PATIENT

DRUGS (6)
  1. CIPRO [Suspect]
     Indication: UNEVALUABLE EVENT
  2. ASPIRIN [Concomitant]
  3. GLIPIZIDE [Concomitant]
  4. VELCADE [Concomitant]
  5. DEXAMETHASONE [Concomitant]
  6. ZOMETA [Concomitant]

REACTIONS (1)
  - RASH [None]
